FAERS Safety Report 12199614 (Version 1)
Quarter: 2016Q1

REPORT INFORMATION
  Report Type: Spontaneous
  Country: FR (occurrence: FR)
  Receive Date: 20160322
  Receipt Date: 20160322
  Transmission Date: 20160526
  Serious: Yes (Hospitalization)
  Sender: FDA-Public Use
  Company Number: FR-PFIZER INC-2016168169

PATIENT
  Age: 44 Year
  Sex: Female

DRUGS (17)
  1. SPIRONOLACTONE. [Suspect]
     Active Substance: SPIRONOLACTONE
     Indication: CHRONIC KIDNEY DISEASE
     Dosage: 50 MG, DAILY
     Route: 048
     Dates: start: 2010
  2. ESOMEPRAZOLE BIOGARAN [Suspect]
     Active Substance: ESOMEPRAZOLE
     Indication: GASTROOESOPHAGEAL REFLUX DISEASE
     Dosage: 40 MG, 2X/DAY
     Route: 048
     Dates: start: 2011
  3. GLIMEPIRIDE BIOGARAN [Suspect]
     Active Substance: GLIMEPIRIDE
     Indication: TYPE 2 DIABETES MELLITUS
     Dosage: 6 MG, DAILY
     Route: 048
     Dates: start: 201601, end: 20160225
  4. TRAMADOL PARACETAMOL BIOGARAN [Concomitant]
     Indication: MYALGIA
     Dosage: 2 DF, DAILY
     Dates: start: 201601
  5. TRAMADOL PARACETAMOL BIOGARAN [Concomitant]
     Indication: BACK PAIN
  6. GLICLAZIDE BIOGARAN [Suspect]
     Active Substance: GLICLAZIDE
     Indication: TYPE 2 DIABETES MELLITUS
     Dosage: UNK
     Route: 048
     Dates: start: 201512, end: 20160225
  7. ACARBOSE BIOGARAN [Suspect]
     Active Substance: ACARBOSE
     Indication: TYPE 2 DIABETES MELLITUS
     Dosage: 300 MG, DAILY
     Route: 048
     Dates: start: 201601, end: 20160225
  8. DIFFU K [Concomitant]
     Active Substance: POTASSIUM CHLORIDE
     Indication: BLOOD POTASSIUM DECREASED
     Dosage: 20 DF, DAILY
  9. RASILEZ [Concomitant]
     Active Substance: ALISKIREN
     Indication: RENAL DISORDER
     Dosage: 300 MG, UNK
  10. MORPHINE HYDROCHLORIDE [Concomitant]
     Active Substance: MORPHINE HYDROCHLORIDE
     Dosage: UNK
     Dates: start: 201402, end: 201601
  11. OXYCONTIN [Concomitant]
     Active Substance: OXYCODONE HYDROCHLORIDE
     Indication: PAIN
     Dosage: UNK
     Dates: start: 201402, end: 201601
  12. CYMBALTA [Concomitant]
     Active Substance: DULOXETINE HYDROCHLORIDE
     Indication: NEURALGIA
     Dosage: 60 MG, DAILY
     Dates: start: 201402, end: 20160307
  13. OXYNORM [Concomitant]
     Active Substance: OXYCODONE HYDROCHLORIDE
     Indication: PAIN
     Dosage: UNK
     Dates: start: 201402, end: 201601
  14. DULOXETINE BIOGARAN [Suspect]
     Active Substance: DULOXETINE
     Indication: NEURALGIA
     Dosage: 60 MG, DAILY
     Route: 048
     Dates: start: 20160307
  15. ADENURIC [Concomitant]
     Active Substance: FEBUXOSTAT
     Indication: HYPERURICAEMIA
     Dosage: UNK
  16. ALDACTONE [Concomitant]
     Active Substance: SPIRONOLACTONE
     Indication: CHRONIC KIDNEY DISEASE
     Dosage: 75 MG, DAILY
  17. MAGNESIUM SULFATE. [Concomitant]
     Active Substance: MAGNESIUM SULFATE
     Indication: BLOOD MAGNESIUM DECREASED
     Dosage: 1 INFUSION ALL 2 WEEKS AND SOMETIMES MORE

REACTIONS (5)
  - Urine abnormality [Not Recovered/Not Resolved]
  - Renal pain [Not Recovered/Not Resolved]
  - Renal colic [Not Recovered/Not Resolved]
  - Glomerular filtration rate decreased [Not Recovered/Not Resolved]
  - Product substitution issue [Not Recovered/Not Resolved]

NARRATIVE: CASE EVENT DATE: 2011
